FAERS Safety Report 16940037 (Version 2)
Quarter: 2020Q1

REPORT INFORMATION
  Report Type: Spontaneous
  Country: IT (occurrence: IT)
  Receive Date: 20191021
  Receipt Date: 20200103
  Transmission Date: 20200409
  Serious: Yes (Other)
  Sender: FDA-Public Use
  Company Number: IT-ROCHE-2447702

PATIENT
  Age: 55 Year
  Sex: Male

DRUGS (3)
  1. HEPARIN [Concomitant]
     Active Substance: HEPARIN SODIUM
  2. ACTILYSE [Suspect]
     Active Substance: ALTEPLASE
     Indication: PULMONARY EMBOLISM
     Route: 042
  3. ACTILYSE [Suspect]
     Active Substance: ALTEPLASE
     Dosage: INITIAL DOSE OF 1 MG/HR/CATHETER FOR 24 HRS, CONTINUED AT 0.5 MG/HR/CATHETER FOR A FURTHER 24 HOURS
     Route: 042

REACTIONS (1)
  - Right ventricular failure [Recovered/Resolved]
